FAERS Safety Report 21940091 (Version 3)
Quarter: 2023Q1

REPORT INFORMATION
  Report Type: Spontaneous
  Country: FR (occurrence: FR)
  Receive Date: 20230201
  Receipt Date: 20230330
  Transmission Date: 20230418
  Serious: Yes (Hospitalization, Other)
  Sender: FDA-Public Use
  Company Number: FR-ALXN-A202300126

PATIENT
  Age: 35 Year
  Sex: Female
  Weight: 150 kg

DRUGS (9)
  1. SOLIRIS [Suspect]
     Active Substance: ECULIZUMAB
     Indication: Myasthenia gravis
     Route: 065
  2. ULTOMIRIS [Suspect]
     Active Substance: RAVULIZUMAB-CWVZ
     Indication: Myasthenia gravis
     Dosage: 3300 MG, EVERY 8 WEEKS
     Route: 065
     Dates: start: 20221102
  3. CALCIUM\CHOLECALCIFEROL [Concomitant]
     Active Substance: CALCIUM\CHOLECALCIFEROL
     Indication: Muscular weakness
     Dosage: UNK, BID
     Route: 065
     Dates: start: 2020
  4. CLOMID [Concomitant]
     Active Substance: CLOMIPHENE CITRATE
     Indication: In vitro fertilisation
     Dosage: UNK
     Route: 065
     Dates: start: 202211
  5. DUPHASTON [Concomitant]
     Active Substance: DYDROGESTERONE
     Indication: In vitro fertilisation
     Dosage: 10 MG, UNK
     Route: 065
     Dates: start: 202211
  6. MESTINON [Concomitant]
     Active Substance: PYRIDOSTIGMINE BROMIDE
     Indication: Muscular weakness
     Dosage: 60 MG, QID
     Route: 065
     Dates: start: 2005
  7. ORACILLINE                         /00001801/ [Concomitant]
     Indication: Muscular weakness
     Dosage: 1 MUI, BID
     Route: 065
     Dates: start: 2022
  8. ESTRADIOL [Concomitant]
     Active Substance: ESTRADIOL
     Indication: In vitro fertilisation
     Dosage: 2 MG, UNK
     Route: 065
     Dates: start: 202211
  9. SOLUPRED                           /00016201/ [Concomitant]
     Indication: Muscular weakness
     Dosage: 20 MG, QD
     Route: 065
     Dates: start: 2005

REACTIONS (2)
  - Myasthenia gravis [Recovering/Resolving]
  - Drug ineffective [Unknown]

NARRATIVE: CASE EVENT DATE: 20230101
